FAERS Safety Report 18520467 (Version 1)
Quarter: 2020Q4

REPORT INFORMATION
  Report Type: Spontaneous
  Country: GB (occurrence: GB)
  Receive Date: 20201118
  Receipt Date: 20201118
  Transmission Date: 20210114
  Serious: Yes (Other)
  Sender: FDA-Public Use
  Company Number: GB-ROCHE-2715583

PATIENT
  Sex: Female

DRUGS (1)
  1. OCREVUS [Suspect]
     Active Substance: OCRELIZUMAB
     Indication: MULTIPLE SCLEROSIS
     Dosage: NEXT INFUSION OF OCRELIZUMAB WAS ON 01/JAN/2021
     Route: 065

REACTIONS (3)
  - Urinary retention [Unknown]
  - Multiple sclerosis [Unknown]
  - Urinary tract infection [Unknown]
